FAERS Safety Report 26068903 (Version 1)
Quarter: 2025Q4

REPORT INFORMATION
  Report Type: Spontaneous
  Country: KR (occurrence: KR)
  Receive Date: 20251120
  Receipt Date: 20251120
  Transmission Date: 20260118
  Serious: Yes (Hospitalization)
  Sender: ACCORD
  Company Number: KR-MLMSERVICE-20251031-PI695033-00108-1

PATIENT
  Age: 27 Year
  Sex: Male

DRUGS (2)
  1. CLOZAPINE [Suspect]
     Active Substance: CLOZAPINE
     Indication: Schizophrenia
     Dosage: CLOZAPINE DOSAGE WAS INCREASED UP TO 100MG ON THE 8TH DAY OF APPLICATION
  2. CLOZAPINE [Suspect]
     Active Substance: CLOZAPINE
     Indication: Schizophrenia
     Dosage: 150MG ON THE 9TH DAY

REACTIONS (2)
  - Myocarditis [Recovered/Resolved]
  - Hypersensitivity [Recovering/Resolving]
